FAERS Safety Report 25968632 (Version 1)
Quarter: 2025Q4

REPORT INFORMATION
  Report Type: Spontaneous
  Country: US (occurrence: None)
  Receive Date: 20251027
  Receipt Date: 20251027
  Transmission Date: 20260118
  Serious: Yes (Disabling)
  Sender: FDA-CTU
  Company Number: None

PATIENT
  Age: 44 Year
  Sex: Female
  Weight: 74.84 kg

DRUGS (5)
  1. AUVELITY [Suspect]
     Active Substance: BUPROPION HYDROCHLORIDE\DEXTROMETHORPHAN HYDROBROMIDE
     Dates: start: 20250822, end: 20250826
  2. ADDERALL [Suspect]
     Active Substance: AMPHETAMINE ASPARTATE\AMPHETAMINE SULFATE\DEXTROAMPHETAMINE SACCHARATE\DEXTROAMPHETAMINE SULFATE
  3. PRISTIQ EXTENDED-RELEASE [Suspect]
     Active Substance: DESVENLAFAXINE SUCCINATE
  4. DULOXETINE [Suspect]
     Active Substance: DULOXETINE
  5. TRINTELLIX [Suspect]
     Active Substance: VORTIOXETINE HYDROBROMIDE
     Dates: start: 20250822, end: 20250826

REACTIONS (17)
  - Nervous system disorder [None]
  - Hypertension [None]
  - Derealisation [None]
  - Parosmia [None]
  - Amnesia [None]
  - Dysgeusia [None]
  - Aphasia [None]
  - Memory impairment [None]
  - Learning disorder [None]
  - Migraine with aura [None]
  - Photosensitivity reaction [None]
  - Hyperacusis [None]
  - Neurotoxicity [None]
  - Paraesthesia [None]
  - Drug interaction [None]
  - Loss of personal independence in daily activities [None]
  - Nonspecific reaction [None]

NARRATIVE: CASE EVENT DATE: 20250826
